FAERS Safety Report 18348049 (Version 1)
Quarter: 2020Q4

REPORT INFORMATION
  Report Type: Spontaneous
  Country: IT (occurrence: IT)
  Receive Date: 20201006
  Receipt Date: 20201006
  Transmission Date: 20210114
  Serious: Yes (Hospitalization, Other)
  Sender: FDA-Public Use
  Company Number: IT-AUROBINDO-AUR-APL-2020-050245

PATIENT
  Age: 67 Year
  Sex: Male

DRUGS (6)
  1. AMIODARONE [Suspect]
     Active Substance: AMIODARONE
     Indication: PRODUCT USED FOR UNKNOWN INDICATION
     Dosage: UNK
     Route: 065
  2. BISOPROLOL [Suspect]
     Active Substance: BISOPROLOL
     Indication: PRODUCT USED FOR UNKNOWN INDICATION
     Dosage: 42 DOSAGE FORM (TOTAL)
     Route: 065
     Dates: start: 20200826, end: 20200826
  3. RAMIPRIL. [Suspect]
     Active Substance: RAMIPRIL
     Indication: PRODUCT USED FOR UNKNOWN INDICATION
     Dosage: 21 DOSAGE FORM (TOTAL)
     Route: 048
  4. IVABRADINE [Suspect]
     Active Substance: IVABRADINE
     Indication: PRODUCT USED FOR UNKNOWN INDICATION
     Dosage: 41 DOSAGE FORM (TOTAL)
     Route: 048
     Dates: start: 20200826, end: 20200826
  5. PRADAXA [Suspect]
     Active Substance: DABIGATRAN ETEXILATE MESYLATE
     Indication: PRODUCT USED FOR UNKNOWN INDICATION
     Dosage: 4 DOSAGE FORM (TOTAL)
     Route: 048
     Dates: start: 20200826, end: 20200826
  6. TRIAZOLAM. [Suspect]
     Active Substance: TRIAZOLAM
     Indication: PRODUCT USED FOR UNKNOWN INDICATION
     Dosage: 20 DOSAGE FORM (TOTAL)
     Route: 048
     Dates: start: 20200826, end: 20200826

REACTIONS (3)
  - Drug abuse [Unknown]
  - Ventricular extrasystoles [Unknown]
  - Speech disorder [Unknown]

NARRATIVE: CASE EVENT DATE: 20200826
